FAERS Safety Report 5612235-0 (Version None)
Quarter: 2008Q1

REPORT INFORMATION
  Report Type: 
  Country: None (occurrence: None)
  Receive Date: 20080204
  Receipt Date: 20080131
  Transmission Date: 20080703
  Serious: Yes (Life-Threatening)
  Sender: FDA-Public Use
  Company Number: US-GENENTECH-254020

PATIENT
  Sex: Female

DRUGS (10)
  1. RAPTIVA [Suspect]
     Indication: PUSTULAR PSORIASIS
     Dosage: 80 MG, 1/WEEK
     Route: 058
     Dates: start: 20040101, end: 20071006
  2. DIGITEK [Concomitant]
     Indication: DRUG USE FOR UNKNOWN INDICATION
  3. COREG [Concomitant]
     Indication: DRUG USE FOR UNKNOWN INDICATION
  4. AVAPRO [Concomitant]
     Indication: DRUG USE FOR UNKNOWN INDICATION
  5. SPIRON [Concomitant]
     Indication: DRUG USE FOR UNKNOWN INDICATION
  6. PLAVIX [Concomitant]
     Indication: DRUG USE FOR UNKNOWN INDICATION
  7. ASPIRIN [Concomitant]
     Indication: DRUG USE FOR UNKNOWN INDICATION
  8. COENZYME Q10 [Concomitant]
     Indication: DRUG USE FOR UNKNOWN INDICATION
  9. DARVON [Concomitant]
     Indication: DRUG USE FOR UNKNOWN INDICATION
  10. CALCIUM GLUCONATE [Concomitant]
     Indication: DRUG USE FOR UNKNOWN INDICATION

REACTIONS (1)
  - CANDIDIASIS [None]
